FAERS Safety Report 6725418-3 (Version None)
Quarter: 2010Q2

REPORT INFORMATION
  Report Type: 
  Country: None (occurrence: None)
  Receive Date: 20100514
  Receipt Date: 20100430
  Transmission Date: 20101027
  Serious: Yes (Other)
  Sender: FDA-Public Use
  Company Number: US-ELI_LILLY_AND_COMPANY-US201005000954

PATIENT
  Sex: Male

DRUGS (3)
  1. EFFIENT [Suspect]
     Dosage: 10 MG, UNK
  2. EFFIENT [Suspect]
     Dosage: 5 MG, DAILY (1/D)
  3. ALCOHOL [Concomitant]

REACTIONS (2)
  - GASTROINTESTINAL HAEMORRHAGE [None]
  - MALLORY-WEISS SYNDROME [None]
